FAERS Safety Report 7885266-8 (Version None)
Quarter: 2011Q4

REPORT INFORMATION
  Report Type: 
  Country: None (occurrence: None)
  Receive Date: 20111102
  Receipt Date: 20111025
  Transmission Date: 20120403
  Serious: Yes (Other)
  Sender: FDA-Public Use
  Company Number: CHPA2011US14871

PATIENT
  Age: 74 Year
  Sex: Female

DRUGS (2)
  1. MAALOX ADV MAXIMUM STRENGTH ANTACID/ANTIGAS [Suspect]
     Indication: DYSPEPSIA
  2. MAALOX ADV MAXIMUM STRENGTH ANTACID/ANTIGAS [Suspect]
     Indication: CONSTIPATION
     Dosage: 1.5 TSP, PRN
     Route: 048
     Dates: start: 20010101, end: 20111021

REACTIONS (5)
  - CARDIAC DISORDER [None]
  - DIARRHOEA [None]
  - UNDERDOSE [None]
  - OFF LABEL USE [None]
  - CARDIAC PACEMAKER INSERTION [None]
